FAERS Safety Report 16441061 (Version 1)
Quarter: 2019Q2

REPORT INFORMATION
  Report Type: Spontaneous
  Country: PT (occurrence: PT)
  Receive Date: 20190617
  Receipt Date: 20190617
  Transmission Date: 20190711
  Serious: Yes (Hospitalization)
  Sender: FDA-Public Use
  Company Number: PT-BAUSCH-BL-2019-016878

PATIENT
  Age: 33 Year
  Sex: Female

DRUGS (2)
  1. METFORMIN [Suspect]
     Active Substance: METFORMIN HYDROCHLORIDE
     Indication: PRODUCT USE IN UNAPPROVED INDICATION
  2. METFORMIN [Suspect]
     Active Substance: METFORMIN HYDROCHLORIDE
     Indication: GESTATIONAL DIABETES
     Route: 065

REACTIONS (6)
  - Chest pain [Unknown]
  - Drug effective for unapproved indication [Recovered/Resolved]
  - Product use in unapproved indication [Unknown]
  - Orthostatic hypotension [Unknown]
  - Maternal exposure during pregnancy [Recovered/Resolved]
  - Phaeochromocytoma [Recovered/Resolved]
